FAERS Safety Report 7106308-3 (Version None)
Quarter: 2010Q4

REPORT INFORMATION
  Report Type: 
  Country: None (occurrence: None)
  Receive Date: 20101116
  Receipt Date: 20101109
  Transmission Date: 20110411
  Serious: Yes (Other)
  Sender: FDA-Public Use
  Company Number: IT-PFIZER INC-2010144388

PATIENT
  Age: 57 Year
  Sex: Male

DRUGS (3)
  1. TORISEL [Suspect]
     Indication: RENAL CANCER
     Dosage: 25 MG, WEEKLY
     Route: 051
     Dates: start: 20100907, end: 20101019
  2. SIVASTIN [Concomitant]
     Dosage: 20 MG, UNK
     Route: 048
     Dates: start: 20100921
  3. NOVONORM [Concomitant]
     Dosage: 0.5 MG, UNK
     Route: 048
     Dates: start: 20101012

REACTIONS (4)
  - HYPOKALAEMIA [None]
  - PROTEINURIA [None]
  - RENAL FAILURE ACUTE [None]
  - SKIN TOXICITY [None]
